FAERS Safety Report 10567067 (Version 2)
Quarter: 2014Q4

REPORT INFORMATION
  Report Type: Spontaneous
  Country: IT (occurrence: IT)
  Receive Date: 20141105
  Receipt Date: 20141105
  Transmission Date: 20150529
  Serious: Yes (Other)
  Sender: FDA-Public Use
  Company Number: PHHY2014IT138002

PATIENT
  Age: 80 Year
  Sex: Female

DRUGS (3)
  1. DELORAZEPAM [Suspect]
     Active Substance: DELORAZEPAM
     Indication: DRUG ABUSE
     Dosage: 2 DF, ONCE/SINGLE
     Route: 048
     Dates: start: 20140911, end: 20140911
  2. LORAZEPAM. [Suspect]
     Active Substance: LORAZEPAM
     Indication: DRUG ABUSE
     Dosage: 7.5 MG, ONCE/SINGLE
     Route: 048
     Dates: start: 20140911, end: 20140911
  3. PAROXETINE [Suspect]
     Active Substance: PAROXETINE\PAROXETINE HYDROCHLORIDE
     Indication: DRUG ABUSE
     Dosage: 2 DF, ONCE/SINGLE
     Route: 048
     Dates: start: 20140911, end: 20140911

REACTIONS (3)
  - Sopor [Recovered/Resolved]
  - Drug abuse [Recovered/Resolved]
  - Psychomotor retardation [Recovered/Resolved]

NARRATIVE: CASE EVENT DATE: 20140911
